FAERS Safety Report 23186042 (Version 1)
Quarter: 2023Q4

REPORT INFORMATION
  Report Type: Report from Study
  Country: KR (occurrence: KR)
  Receive Date: 20231115
  Receipt Date: 20231115
  Transmission Date: 20240110
  Serious: Yes (Hospitalization)
  Sender: FDA-Public Use
  Company Number: KR-Eisai Medical Research-EC-2023-139317

PATIENT
  Age: 61 Year
  Sex: Female
  Weight: 48 kg

DRUGS (14)
  1. LENVIMA [Suspect]
     Active Substance: LENVATINIB
     Indication: Endometrial cancer
     Route: 048
     Dates: start: 20230307, end: 20230427
  2. LENVIMA [Suspect]
     Active Substance: LENVATINIB
     Route: 048
     Dates: start: 20230428, end: 20230517
  3. LENVIMA [Suspect]
     Active Substance: LENVATINIB
     Route: 048
     Dates: start: 20230518, end: 20230628
  4. PEMBROLIZUMAB [Suspect]
     Active Substance: PEMBROLIZUMAB
     Indication: Endometrial cancer
     Route: 041
     Dates: start: 20230307, end: 20230307
  5. PEMBROLIZUMAB [Suspect]
     Active Substance: PEMBROLIZUMAB
     Route: 041
     Dates: start: 20230413, end: 20230413
  6. PEMBROLIZUMAB [Suspect]
     Active Substance: PEMBROLIZUMAB
     Route: 041
     Dates: start: 20230623
  7. LYRICA [Concomitant]
     Active Substance: PREGABALIN
     Indication: Abdominal pain
     Route: 048
     Dates: start: 20230307
  8. MAGMIL S [Concomitant]
     Indication: Constipation
     Route: 048
     Dates: start: 20230307
  9. TRAZODONE HYDROCHLORIDE [Concomitant]
     Active Substance: TRAZODONE HYDROCHLORIDE
     Indication: Insomnia
     Route: 048
     Dates: start: 20230307
  10. AMOSARTAN [Concomitant]
     Indication: Hypertension
     Dosage: DOSE- 5/50 MG
     Route: 048
     Dates: start: 20230313
  11. DUROGESIC D-TRANS PATCH [Concomitant]
     Indication: Abdominal pain
     Route: 062
     Dates: start: 20230405, end: 20230427
  12. DUROGESIC D-TRANS PATCH [Concomitant]
     Indication: Abdominal pain
     Route: 062
     Dates: start: 20230428
  13. OXYCODONE HYDROCHLORIDE [Concomitant]
     Active Substance: OXYCODONE HYDROCHLORIDE
     Indication: Abdominal pain
     Route: 048
     Dates: start: 20220908
  14. ZYPREXA [Concomitant]
     Active Substance: OLANZAPINE
     Indication: Insomnia
     Route: 048
     Dates: start: 20230413

REACTIONS (2)
  - Muscular weakness [Recovered/Resolved]
  - Abdominal pain [Recovered/Resolved]

NARRATIVE: CASE EVENT DATE: 20230421
